FAERS Safety Report 8872336 (Version 1)
Quarter: 2012Q4

REPORT INFORMATION
  Report Type: Spontaneous
  Country: DK (occurrence: None)
  Receive Date: 20121024
  Receipt Date: 20121024
  Transmission Date: 20130627
  Serious: Yes (Hospitalization, Disabling, Congenital Anomaly, Other)
  Sender: FDA-Public Use
  Company Number: 2012MA012600

PATIENT
  Sex: Male

DRUGS (2)
  1. CITALOPRAM HYDROBROMIDE [Suspect]
     Indication: DEPRESSION
     Route: 064
  2. THYROXIN [Concomitant]

REACTIONS (7)
  - Ventricular septal defect [None]
  - Cleft lip and palate [None]
  - Atrial septal defect [None]
  - Hypoglycaemia neonatal [None]
  - Neonatal respiratory distress syndrome [None]
  - Caesarean section [None]
  - Maternal drugs affecting foetus [None]
